FAERS Safety Report 9523108 (Version 1)
Quarter: 2013Q1

REPORT INFORMATION
  Report Type: Spontaneous
  Country: US (occurrence: None)
  Receive Date: 20130305
  Receipt Date: 20130305
  Transmission Date: 20140127
  Serious: Yes (Hospitalization, Other)
  Sender: FDA-Public Use
  Company Number: 163-21880-12072650

PATIENT
  Age: 72 Year
  Sex: Male

DRUGS (6)
  1. REVLIMID [Suspect]
     Indication: PLASMA CELL MYELOMA
     Dosage: 1 IN 1 D
     Route: 048
     Dates: start: 20120120, end: 2012
  2. ACYCLOVIR (ACICLOVIR) (ACICLOVIR) [Concomitant]
  3. ZOFRAN (ONDANSETRON HYDROCHLORIDE) [Concomitant]
  4. VORICONAZOLE [Concomitant]
  5. BACTRIM DS (BACTRIM) [Concomitant]
  6. ACETYLCYSTEINE [Concomitant]

REACTIONS (4)
  - Pneumonia fungal [None]
  - Lung infection [None]
  - Cardiac failure [None]
  - Full blood count decreased [None]
